FAERS Safety Report 6419201-6 (Version None)
Quarter: 2009Q4

REPORT INFORMATION
  Report Type: 
  Country: None (occurrence: None)
  Receive Date: 20091029
  Receipt Date: 20091021
  Transmission Date: 20100525
  Serious: Yes (Hospitalization)
  Sender: FDA-Public Use
  Company Number: PHHO2009US12985

PATIENT
  Age: 42 Year
  Sex: Female
  Weight: 94.8 kg

DRUGS (15)
  1. ALDESLEUKIN C-ALDE+ [Suspect]
     Indication: CHRONIC GRAFT VERSUS HOST DISEASE
     Dosage: UNK
     Route: 058
     Dates: start: 20080506
  2. ACYCLOVIR [Concomitant]
  3. AZITHROMYCIN [Concomitant]
  4. ALBUTEROL [Concomitant]
  5. TRIMETHOPRIM [Concomitant]
  6. MYCOPHENOLATE MOFETIL [Concomitant]
  7. ALENDRONATE SODIUM [Concomitant]
  8. INSULIN [Concomitant]
  9. PREDNISONE TAB [Concomitant]
  10. SIROLIMUS [Concomitant]
  11. FENOFIBRATE [Concomitant]
  12. VORICONAZOLE [Concomitant]
  13. SERTRALINE HCL [Concomitant]
  14. OMEPRAZOLE [Concomitant]
  15. TACROLIMUS [Concomitant]

REACTIONS (2)
  - BLOOD THYROID STIMULATING HORMONE INCREASED [None]
  - PYREXIA [None]
